FAERS Safety Report 20760095 (Version 1)
Quarter: 2022Q2

REPORT INFORMATION
  Report Type: Spontaneous
  Country: US (occurrence: US)
  Receive Date: 20220428
  Receipt Date: 20220428
  Transmission Date: 20220720
  Serious: Yes (Other)
  Sender: FDA-Public Use
  Company Number: US-BRISTOL-MYERS SQUIBB COMPANY-2022-024169

PATIENT
  Age: 75 Year
  Sex: Female
  Weight: 68.4 kg

DRUGS (5)
  1. REVLIMID [Suspect]
     Active Substance: LENALIDOMIDE
     Indication: Plasma cell myeloma
     Dosage: DOSE 25 MG, FREQUENCY: 1 CAPSULES DAILY FOR 21 DAYS ON, 7 DAY OFF
     Route: 048
     Dates: start: 20220323
  2. DARZALEX FASPRO [Concomitant]
     Active Substance: DARATUMUMAB\HYALURONIDASE-FIHJ
     Dosage: DOSE 120 MG/ML
  3. XGEVA [Concomitant]
     Active Substance: DENOSUMAB
     Dosage: DOSE:  120MG/1.7ML VIA
  4. SYNTHROID [Concomitant]
     Active Substance: LEVOTHYROXINE SODIUM
     Dosage: DOSE: ORAL TABLET 75 MCG
  5. HYZAAR [Concomitant]
     Active Substance: HYDROCHLOROTHIAZIDE\LOSARTAN POTASSIUM
     Dosage: DOSE: ORAL TABLET 100-12.5 MG

REACTIONS (2)
  - Neuropathy peripheral [Not Recovered/Not Resolved]
  - Tremor [Not Recovered/Not Resolved]
